FAERS Safety Report 4600084-1 (Version None)
Quarter: 2005Q1

REPORT INFORMATION
  Report Type: 
  Country: None (occurrence: None)
  Receive Date: 20050303
  Receipt Date: 20050223
  Transmission Date: 20050727
  Serious: Yes (Hospitalization)
  Sender: FDA-Public Use
  Company Number: TCI2005A01347

PATIENT
  Age: 78 Year
  Sex: Male

DRUGS (6)
  1. ACTOS [Suspect]
     Indication: DIABETES MELLITUS
     Dosage: 30 MG (30 MG, 1 D) PER ORAL
     Route: 048
     Dates: start: 20050215, end: 20050223
  2. LAC B (LACTOBACILLUS BIFIDUS, LYOPHILIZED) [Concomitant]
  3. ATELEC (CILNIDIPINE) [Concomitant]
  4. MUCOSTA (REBAMIPIDE) [Concomitant]
  5. LENDORM [Concomitant]
  6. RESPLEN (EPRAZINONE HYDROCHLORIDE) [Concomitant]

REACTIONS (1)
  - LOSS OF CONSCIOUSNESS [None]
